FAERS Safety Report 25054117 (Version 2)
Quarter: 2025Q4

REPORT INFORMATION
  Report Type: Report from Study
  Country: US (occurrence: US)
  Receive Date: 20250307
  Receipt Date: 20251224
  Transmission Date: 20260117
  Serious: No
  Sender: SANOFI AVENTIS
  Company Number: US-SA-2025SA067939

PATIENT
  Age: 69 Year
  Sex: Female

DRUGS (2)
  1. INSULIN GLARGINE\LIXISENATIDE [Suspect]
     Active Substance: INSULIN GLARGINE\LIXISENATIDE
     Indication: Blood glucose abnormal
     Dosage: 18 IU, BID
     Route: 058
  2. INSULIN GLARGINE\LIXISENATIDE [Suspect]
     Active Substance: INSULIN GLARGINE\LIXISENATIDE
     Dosage: 22U QAM AND 20U QPM, BID
     Route: 058

REACTIONS (1)
  - Off label use [Unknown]
